FAERS Safety Report 19303290 (Version 1)
Quarter: 2021Q2

REPORT INFORMATION
  Report Type: Spontaneous
  Country: US (occurrence: US)
  Receive Date: 20210525
  Receipt Date: 20210525
  Transmission Date: 20210717
  Serious: No
  Sender: FDA-Public Use
  Company Number: US-UPSHER-SMITH LABORATORIES, LLC-2020USL00595

PATIENT
  Sex: Female

DRUGS (13)
  1. MAGNESIUM MALATE. [Concomitant]
     Active Substance: MAGNESIUM MALATE
  2. NYAMYC [Suspect]
     Active Substance: NYSTATIN
  3. DULCOLAX NOS [Concomitant]
     Active Substance: BISACODYL OR DOCUSATE SODIUM
  4. MEDICAL MARIJUANA [Concomitant]
     Active Substance: CANNABIS SATIVA SUBSP. INDICA TOP
  5. ACIDOLPHILUS [Concomitant]
  6. CRANBERRY. [Concomitant]
     Active Substance: CRANBERRY
  7. HYLAND^S [Concomitant]
  8. BONE STRENGTH [Concomitant]
  9. CANNA OIL [Concomitant]
  10. RECLAST [Concomitant]
     Active Substance: ZOLEDRONIC ACID
  11. VITAMIN D3 [Concomitant]
     Active Substance: CHOLECALCIFEROL
  12. DRAMAMINE [Concomitant]
     Active Substance: DIMENHYDRINATE
  13. SHINGRIX [Concomitant]
     Active Substance: RECOMBINANT VARICELLA ZOSTER VIRUS (VZV) GLYCOPROTEIN E

REACTIONS (1)
  - Rash [Unknown]
